FAERS Safety Report 9014128 (Version 2)
Quarter: 2013Q1

REPORT INFORMATION
  Report Type: Spontaneous
  Country: US (occurrence: US)
  Receive Date: 20130115
  Receipt Date: 20130122
  Transmission Date: 20140127
  Serious: Yes (Other)
  Sender: FDA-Public Use
  Company Number: US-DX529-2013DX000002

PATIENT
  Age: 27 Year
  Sex: Female

DRUGS (3)
  1. KALBITOR [Suspect]
     Indication: HEREDITARY ANGIOEDEMA
     Route: 058
     Dates: start: 20121225, end: 20121225
  2. DANAZOL [Concomitant]
     Indication: HEREDITARY ANGIOEDEMA
     Route: 048
  3. LOESTRIN [Concomitant]
     Indication: CONTRACEPTION
     Route: 048

REACTIONS (5)
  - Anaphylactic reaction [Recovered/Resolved]
  - Dyspnoea [None]
  - Feeling hot [None]
  - Nausea [None]
  - Drug hypersensitivity [None]
